FAERS Safety Report 22602272 (Version 1)
Quarter: 2023Q2

REPORT INFORMATION
  Report Type: Other
  Country: CH (occurrence: None)
  Receive Date: 20230614
  Receipt Date: 20230614
  Transmission Date: 20230721
  Serious: Yes (Death)
  Sender: FDA-Public Use
  Company Number: CH-ROCHE-3367183

PATIENT
  Age: 81 Year
  Sex: Male

DRUGS (1)
  1. RITUXIMAB [Suspect]
     Active Substance: RITUXIMAB
     Indication: Rheumatoid arthritis
     Route: 042

REACTIONS (4)
  - Sepsis [Fatal]
  - Bronchopulmonary aspergillosis [Fatal]
  - Shock haemorrhagic [Fatal]
  - Duodenal ulcer haemorrhage [Fatal]
